FAERS Safety Report 7473928-6 (Version None)
Quarter: 2011Q2

REPORT INFORMATION
  Report Type: 
  Country: None (occurrence: None)
  Receive Date: 20110511
  Receipt Date: 20110506
  Transmission Date: 20111010
  Serious: No
  Sender: FDA-Public Use
  Company Number: US-ABBOTT-11P-163-0724121-00

PATIENT
  Sex: Male
  Weight: 76.272 kg

DRUGS (8)
  1. NORVIR [Suspect]
     Indication: HIV TEST POSITIVE
     Dates: start: 20110101, end: 20110101
  2. NORVIR [Suspect]
     Indication: HIV TEST POSITIVE
     Dates: end: 20110101
  3. LEXIVA [Concomitant]
     Indication: PRODUCT USED FOR UNKNOWN INDICATION
  4. NORVIR [Suspect]
     Dates: start: 20110101
  5. EPIVIR [Concomitant]
     Indication: PRODUCT USED FOR UNKNOWN INDICATION
  6. NORVIR [Suspect]
     Dates: start: 20110101
  7. NORVIR [Suspect]
  8. ZERIT [Concomitant]
     Indication: PRODUCT USED FOR UNKNOWN INDICATION

REACTIONS (4)
  - PRURITUS [None]
  - BURNING SENSATION [None]
  - PARAESTHESIA [None]
  - ALOPECIA [None]
